FAERS Safety Report 12779299 (Version 1)
Quarter: 2016Q3

REPORT INFORMATION
  Report Type: Spontaneous
  Country: US (occurrence: US)
  Receive Date: 20160922
  Receipt Date: 20160922
  Transmission Date: 20161109
  Serious: Yes (Hospitalization)
  Sender: FDA-Public Use
  Company Number: None

PATIENT

DRUGS (1)
  1. DIVALPROEX [Suspect]
     Active Substance: DIVALPROEX SODIUM
     Indication: SCHIZOAFFECTIVE DISORDER
     Dates: start: 20140421, end: 20141124

REACTIONS (2)
  - Agitation [None]
  - Hyperammonaemic encephalopathy [None]

NARRATIVE: CASE EVENT DATE: 20141124
